FAERS Safety Report 5796953-X (Version None)
Quarter: 2008Q2

REPORT INFORMATION
  Report Type: 
  Country: None (occurrence: None)
  Receive Date: 20080618
  Receipt Date: 20070514
  Transmission Date: 20081010
  Serious: Yes (Other)
  Sender: FDA-Public Use
  Company Number: 200712224US

PATIENT
  Age: 59 Year
  Sex: Female
  Weight: 79 kg

DRUGS (10)
  1. LANTUS [Suspect]
     Dosage: INJ
     Dates: start: 20070101
  2. LANTUS [Suspect]
     Dosage: 30-36 U QAM INJ
     Dates: start: 20030101
  3. NOVOLOG [Suspect]
     Dosage: INJ
     Dates: start: 20030101
  4. VALSARTAN (DIOVANE) [Concomitant]
  5. TACROLIMUS (PROGRAFT) [Concomitant]
  6. SYNTHROID [Concomitant]
  7. SODIUM BICARBONATE [Concomitant]
  8. ESOMEPRAZOLE [Concomitant]
  9. CLOPIDOGREL (PLAVIX /012220701/) [Concomitant]
  10. ADENOSINE (TRICOR /00090101/) [Concomitant]

REACTIONS (3)
  - BLOOD GLUCOSE DECREASED [None]
  - BLOOD GLUCOSE INCREASED [None]
  - HYPOGLYCAEMIA [None]
